FAERS Safety Report 8830100 (Version 2)
Quarter: 2012Q4

REPORT INFORMATION
  Report Type: 
  Country: DE (occurrence: DE)
  Receive Date: 20121008
  Receipt Date: 20121102
  Transmission Date: 20130627
  Serious: Yes (Other)
  Sender: FDA-Public Use
  Company Number: DE-VERTEX PHARMACEUTICAL INC.-2012-022450

PATIENT
  Sex: Female

DRUGS (4)
  1. INCIVO [Suspect]
     Indication: PRODUCT USED FOR UNKNOWN INDICATION
     Dosage: 376 mg, UNK
     Route: 048
     Dates: start: 20120907, end: 20120911
  2. INCIVO [Suspect]
     Indication: HEPATITIS C
  3. RIBAVIRIN [Concomitant]
     Dates: start: 20120907, end: 20120911
  4. PEG-INTERFERON [Concomitant]
     Dates: start: 20120907, end: 20120911

REACTIONS (1)
  - Rash [Recovered/Resolved]
